FAERS Safety Report 8421676-8 (Version None)
Quarter: 2012Q2

REPORT INFORMATION
  Report Type: 
  Country: None (occurrence: None)
  Receive Date: 20120608
  Receipt Date: 20120530
  Transmission Date: 20120825
  Serious: Yes (Other)
  Sender: FDA-Public Use
  Company Number: US-US-EMD SERONO, INC.-7059622

PATIENT
  Sex: Female

DRUGS (2)
  1. LEXAPRO [Concomitant]
     Indication: DEPRESSION
  2. EGRIFTA [Suspect]
     Indication: LIPODYSTROPHY ACQUIRED
     Dates: start: 20110101

REACTIONS (3)
  - RESPIRATORY TRACT CONGESTION [None]
  - SINUS CONGESTION [None]
  - BLOOD PRESSURE INCREASED [None]
